FAERS Safety Report 5052000-9 (Version None)
Quarter: 2006Q3

REPORT INFORMATION
  Report Type: 
  Country: None (occurrence: None)
  Receive Date: 20060711
  Receipt Date: 20060622
  Transmission Date: 20061208
  Serious: Yes (Disabling)
  Sender: FDA-Public Use
  Company Number: ABILP-06-0225

PATIENT
  Age: 63 Year
  Sex: Female
  Weight: 77.5 kg

DRUGS (16)
  1. ABRAXANE [Suspect]
     Indication: BREAST CANCER METASTATIC
     Dosage: 400 MG DAY/EVERY 3 WEEKS 8 DOSES (220 MG/M2, EVERY 3 WEEKS), INTRAVENOUS DRIP
     Route: 041
     Dates: start: 20051122, end: 20060421
  2. HORMONAL AGENTS (OTHER HORMONES) [Concomitant]
  3. FENTANYL CITRATE [Concomitant]
  4. LIPITOR [Concomitant]
  5. PRILOSEC [Concomitant]
  6. ACCUPRIL [Concomitant]
  7. ZOMETA [Concomitant]
  8. GLUCOPHAGE [Concomitant]
  9. GLYBURIDE [Concomitant]
  10. FERROUS SULFATE TAB [Concomitant]
  11. REGLAN [Concomitant]
  12. PROCRIT [Concomitant]
  13. EFFEXOR [Concomitant]
  14. KYTRIL [Concomitant]
  15. DECADRON [Concomitant]
  16. COMPAZINE [Concomitant]

REACTIONS (6)
  - BREAST CANCER METASTATIC [None]
  - EYELID PTOSIS [None]
  - FACIAL PALSY [None]
  - HERPES SIMPLEX [None]
  - NEUROPATHY PERIPHERAL [None]
  - TONGUE DISORDER [None]
